FAERS Safety Report 4434171-8 (Version None)
Quarter: 2004Q3

REPORT INFORMATION
  Report Type: 
  Country: None (occurrence: None)
  Receive Date: 20040825
  Receipt Date: 20040810
  Transmission Date: 20050211
  Serious: No
  Sender: FDA-Public Use
  Company Number: 04P-062-0247702-00

PATIENT
  Age: 49 Year
  Sex: Female
  Weight: 50 kg

DRUGS (7)
  1. HUMIRA [Suspect]
     Indication: RHEUMATOID ARTHRITIS
     Dosage: 40 MG, 1 IN 2 WK, SUBCUTANEOUS
     Route: 058
     Dates: start: 20031016, end: 20040121
  2. METHOTREXATE [Concomitant]
  3. GLUCOCORTICOIDS [Concomitant]
  4. NONSTEROIDAL ANTIRHEUMATIC [Concomitant]
  5. METHOTREXATE SODIUM [Concomitant]
  6. PREDNISOLONE [Concomitant]
  7. DICLOFENAC [Concomitant]

REACTIONS (3)
  - DERMATITIS PSORIASIFORM [None]
  - EXANTHEM [None]
  - LYMPH NODE TUBERCULOSIS [None]
